FAERS Safety Report 24921023 (Version 2)
Quarter: 2025Q1

REPORT INFORMATION
  Report Type: Spontaneous
  Country: JP (occurrence: JP)
  Receive Date: 20250204
  Receipt Date: 20250217
  Transmission Date: 20250409
  Serious: Yes (Hospitalization)
  Sender: TEVA
  Company Number: JP-TEVA-VS-3291957

PATIENT
  Age: 60 Year
  Sex: Male

DRUGS (4)
  1. PREDNISOLONE [Suspect]
     Active Substance: PREDNISOLONE
     Indication: Dermatitis atopic
     Route: 065
  2. PREDNISOLONE [Suspect]
     Active Substance: PREDNISOLONE
     Indication: Dermatitis atopic
     Route: 065
  3. MEPOLIZUMAB [Suspect]
     Active Substance: MEPOLIZUMAB
     Indication: Dermatitis atopic
     Route: 065
  4. CYCLOSPORINE [Concomitant]
     Active Substance: CYCLOSPORINE
     Indication: Dermatitis atopic
     Route: 065

REACTIONS (2)
  - Dermatitis atopic [Recovering/Resolving]
  - Rebound atopic dermatitis [Unknown]
